FAERS Safety Report 9901744 (Version 1)
Quarter: 2014Q1

REPORT INFORMATION
  Report Type: Spontaneous
  Country: CH (occurrence: CH)
  Receive Date: 20140217
  Receipt Date: 20140217
  Transmission Date: 20141002
  Serious: Yes (Hospitalization)
  Sender: FDA-Public Use
  Company Number: CH-ELI_LILLY_AND_COMPANY-CH201402002289

PATIENT
  Age: 79 Year
  Sex: Female

DRUGS (16)
  1. CYMBALTA [Suspect]
     Indication: PRODUCT USED FOR UNKNOWN INDICATION
     Dosage: 60 MG, QD
     Route: 048
  2. PRIADEL /00033702/ [Interacting]
     Indication: DEPRESSION
     Dosage: 200 MG, QD
     Route: 048
     Dates: start: 20131228, end: 20140114
  3. PRIADEL /00033702/ [Interacting]
     Indication: BIPOLAR DISORDER
  4. VALSARTAN [Interacting]
     Indication: PRODUCT USED FOR UNKNOWN INDICATION
     Dosage: 160 MG, QD
     Route: 048
     Dates: end: 20140114
  5. REMERON [Interacting]
     Indication: PRODUCT USED FOR UNKNOWN INDICATION
     Dosage: 45 MG, QD
     Route: 048
  6. GABAPENTIN [Concomitant]
     Dosage: 100 MG, TID
     Route: 048
  7. ABILIFY [Concomitant]
     Dosage: 15 MG, QD
     Route: 048
  8. SERESTA [Concomitant]
     Dosage: 15 MG, QD
     Route: 048
  9. BALDRIAN-DISPERT [Concomitant]
     Dosage: 30 GTT, QD
     Route: 048
  10. ELTROXIN LF [Concomitant]
     Indication: HYPOTHYROIDISM
     Dosage: UNK
     Route: 048
  11. DUPHALAC                           /00163401/ [Concomitant]
     Dosage: 20 ML, QD
     Route: 048
  12. LAXOBERON [Concomitant]
     Dosage: 10 GTT, QD
     Route: 048
  13. CALCIUM D3 SANDOZ [Concomitant]
     Dosage: UNK
     Route: 048
  14. VITARUBIN                          /00091803/ [Concomitant]
     Dosage: 4 TIMES PER YEAR
     Route: 030
  15. DAIVOBET [Concomitant]
     Dosage: 60 G, WEEKLY (1/W)
  16. BETNOVATE [Concomitant]
     Dosage: 1 DF, WEEKLY (1/W)

REACTIONS (3)
  - Toxicity to various agents [Recovered/Resolved]
  - Renal failure chronic [Recovered/Resolved]
  - Drug interaction [Unknown]
